FAERS Safety Report 20730405 (Version 1)
Quarter: 2022Q2

REPORT INFORMATION
  Report Type: Spontaneous
  Country: US (occurrence: US)
  Receive Date: 20220420
  Receipt Date: 20220420
  Transmission Date: 20220721
  Serious: No
  Sender: FDA-Public Use
  Company Number: US-BRISTOL-MYERS SQUIBB COMPANY-2022-012465

PATIENT
  Age: 68 Year
  Sex: Female
  Weight: 58.06 kg

DRUGS (1)
  1. POMALYST [Suspect]
     Active Substance: POMALIDOMIDE
     Indication: Plasma cell myeloma
     Dosage: FREQUENCY :2W ON, 2 W OFF
     Route: 048
     Dates: start: 20210120

REACTIONS (4)
  - Fatigue [Unknown]
  - Muscle spasms [Unknown]
  - Dyspnoea [Unknown]
  - Intentional product use issue [Unknown]
